FAERS Safety Report 5500833-4 (Version None)
Quarter: 2007Q4

REPORT INFORMATION
  Report Type: 
  Country: None (occurrence: None)
  Receive Date: 20071029
  Receipt Date: 20071016
  Transmission Date: 20080405
  Serious: Yes (Hospitalization)
  Sender: FDA-Public Use
  Company Number: B0492205A

PATIENT
  Sex: Female

DRUGS (2)
  1. LAPATINIB [Suspect]
     Route: 048
  2. CAPECITABINE [Suspect]
     Route: 048

REACTIONS (1)
  - PAIN [None]
